FAERS Safety Report 9371751 (Version 1)
Quarter: 2013Q2

REPORT INFORMATION
  Report Type: Spontaneous
  Country: KR (occurrence: KR)
  Receive Date: 20130627
  Receipt Date: 20130627
  Transmission Date: 20140414
  Serious: Yes (Other)
  Sender: FDA-Public Use
  Company Number: KR-MYLANLABS-2013S1013426

PATIENT
  Sex: 0

DRUGS (3)
  1. SIMVASTATIN [Suspect]
  2. SIROLIMUS [Interacting]
  3. CISPLATIN [Interacting]

REACTIONS (4)
  - Rhabdomyolysis [Unknown]
  - Renal failure acute [Unknown]
  - Drug interaction [Unknown]
  - Drug interaction [Unknown]
